FAERS Safety Report 10687674 (Version 1)
Quarter: 2014Q4

REPORT INFORMATION
  Report Type: Spontaneous
  Country: US (occurrence: None)
  Receive Date: 20141231
  Receipt Date: 20141231
  Transmission Date: 20150529
  Serious: No
  Sender: FDA-Public Use
  Company Number: None

PATIENT

DRUGS (2)
  1. MITOXANTRONE 20 MG/10 ML HOSPIRA [Suspect]
     Active Substance: MITOXANTRONE HYDROCHLORIDE
     Indication: NEOPLASM MALIGNANT
  2. MITOXANTRONE 20 MG/ML HOSPIRA [Suspect]
     Active Substance: MITOXANTRONE HYDROCHLORIDE
     Indication: NEOPLASM MALIGNANT

REACTIONS (2)
  - Drug administration error [None]
  - Drug effect decreased [None]
